FAERS Safety Report 9128538 (Version 1)
Quarter: 2013Q1

REPORT INFORMATION
  Report Type: Spontaneous
  Country: US (occurrence: US)
  Receive Date: 20130125
  Receipt Date: 20130125
  Transmission Date: 20140127
  Serious: Yes (Other)
  Sender: FDA-Public Use
  Company Number: US-JNJFOC-20130108538

PATIENT
  Sex: Female
  Weight: 87.09 kg

DRUGS (4)
  1. SIMPONI [Suspect]
     Indication: ARTHRITIS
     Route: 058
     Dates: start: 201211
  2. SIMPONI [Suspect]
     Indication: OSTEOARTHRITIS
     Route: 058
     Dates: start: 201211
  3. SIMPONI [Suspect]
     Indication: RHEUMATOID ARTHRITIS
     Route: 058
     Dates: start: 201211
  4. MANY OTHER UNSPECIFIED MEDICATIONS [Concomitant]
     Route: 065

REACTIONS (3)
  - Visual acuity reduced [Not Recovered/Not Resolved]
  - Arthritis [Recovered/Resolved]
  - Drug ineffective [Not Recovered/Not Resolved]
